FAERS Safety Report 8209156-6 (Version None)
Quarter: 2012Q1

REPORT INFORMATION
  Report Type: 
  Country: None (occurrence: None)
  Receive Date: 20120314
  Receipt Date: 20120308
  Transmission Date: 20120608
  Serious: Yes (Death, Life-Threatening)
  Sender: FDA-Public Use
  Company Number: JP-BAYER-2011-108601

PATIENT
  Age: 69 Year
  Sex: Female
  Weight: 46 kg

DRUGS (10)
  1. NEXAVAR [Suspect]
     Dosage: 400 MG, UNK
     Route: 048
     Dates: start: 20111202, end: 20120115
  2. LANSOPRAZOLE [Concomitant]
     Indication: OESOPHAGEAL ULCER
  3. LASIX [Concomitant]
     Indication: ASCITES
     Dosage: DAILY DOSE 30 MG
     Route: 048
     Dates: start: 20110415, end: 20120115
  4. AMINOLEBAN EN [Concomitant]
     Indication: HEPATIC CIRRHOSIS
     Dosage: DAILY DOSE 100 G
     Route: 048
     Dates: start: 20110415, end: 20120115
  5. NEXAVAR [Suspect]
     Indication: HEPATIC NEOPLASM MALIGNANT
     Dosage: 400 MG, BID
     Route: 048
     Dates: start: 20111017, end: 20111201
  6. ALLOPURINOL [Concomitant]
     Indication: HYPERURICAEMIA
     Dosage: DAILY DOSE 200 MG
     Route: 048
     Dates: end: 20120115
  7. ZOLPIDEM [Concomitant]
     Indication: INSOMNIA
     Dosage: DAILY DOSE 10 MG
     Route: 048
     Dates: end: 20120115
  8. CEONOMAL [Concomitant]
     Indication: HYPERTENSION
     Dosage: DAILY DOSE 20 MG
     Route: 048
     Dates: end: 20120115
  9. URSO 250 [Concomitant]
     Indication: HEPATITIS C
     Dosage: DAILY DOSE 600 MG
     Route: 048
     Dates: end: 20120115
  10. LANSOPRAZOLE [Concomitant]
     Indication: VARICES OESOPHAGEAL
     Dosage: DAILY DOSE 30 MG
     Route: 048
     Dates: end: 20120115

REACTIONS (6)
  - HYPOTHYROIDISM [None]
  - HYPONATRAEMIA [None]
  - MALAISE [None]
  - PLATELET COUNT DECREASED [None]
  - DECREASED APPETITE [None]
  - HEPATIC FAILURE [None]
